FAERS Safety Report 9974847 (Version 1)
Quarter: 2014Q1

REPORT INFORMATION
  Report Type: Report from Study
  Country: US (occurrence: US)
  Receive Date: 20140306
  Receipt Date: 20140306
  Transmission Date: 20141002
  Serious: No
  Sender: FDA-Public Use
  Company Number: US-ABBVIE-13P-163-1157857-00

PATIENT
  Age: 70 Year
  Sex: Male
  Weight: 86.26 kg

DRUGS (4)
  1. HUMIRA [Suspect]
     Indication: PSORIATIC ARTHROPATHY
     Route: 058
     Dates: start: 201303
  2. HUMIRA [Suspect]
     Indication: PSORIASIS
  3. OMEPRAZOLE [Concomitant]
     Indication: GASTROOESOPHAGEAL REFLUX DISEASE
  4. ATORVASTATIN [Concomitant]
     Indication: BLOOD CHOLESTEROL INCREASED

REACTIONS (4)
  - Nerve compression [Not Recovered/Not Resolved]
  - Arthralgia [Not Recovered/Not Resolved]
  - Psoriasis [Not Recovered/Not Resolved]
  - Hypoaesthesia [Not Recovered/Not Resolved]
